FAERS Safety Report 6180845-0 (Version None)
Quarter: 2009Q2

REPORT INFORMATION
  Report Type: 
  Country: None (occurrence: None)
  Receive Date: 20090506
  Receipt Date: 20090424
  Transmission Date: 20091009
  Serious: Yes (Life-Threatening, Hospitalization, Other)
  Sender: FDA-Public Use
  Company Number: AT-PFIZER INC-2009192379

PATIENT

DRUGS (3)
  1. ZYVOXID [Suspect]
     Indication: SINUSITIS
     Dosage: 600 MG, 2X/DAY
     Route: 042
     Dates: start: 20090114, end: 20090123
  2. PROGRAF [Concomitant]
     Dosage: 5 MG, 1X/DAY
  3. PANTOPRAZOL [Concomitant]
     Dosage: 40 MG, 1X/DAY

REACTIONS (1)
  - AGRANULOCYTOSIS [None]
